FAERS Safety Report 9925989 (Version 1)
Quarter: 2014Q1

REPORT INFORMATION
  Report Type: Spontaneous
  Country: US (occurrence: US)
  Receive Date: 20140226
  Receipt Date: 20140226
  Transmission Date: 20141002
  Serious: No
  Sender: FDA-Public Use
  Company Number: US-BRACCO-010379

PATIENT
  Age: 28 Year
  Sex: Female

DRUGS (1)
  1. ISOVUE [Suspect]
     Indication: COMPUTERISED TOMOGRAM
     Dosage: OCCUPATIONAL EXPOSURE
     Route: 050
     Dates: start: 20131118, end: 20131118

REACTIONS (2)
  - Occupational exposure to product [Recovered/Resolved]
  - Lip swelling [Recovered/Resolved]
